FAERS Safety Report 5030364-X (Version None)
Quarter: 2006Q2

REPORT INFORMATION
  Report Type: 
  Country: None (occurrence: None)
  Receive Date: 20060615
  Receipt Date: 20060530
  Transmission Date: 20061013
  Serious: No
  Sender: FDA-Public Use
  Company Number: US200606000343

PATIENT
  Age: 29 Year
  Sex: Female
  Weight: 136.1 kg

DRUGS (1)
  1. CYMBALTA [Suspect]
     Dosage: 30 MG

REACTIONS (3)
  - ALANINE AMINOTRANSFERASE INCREASED [None]
  - SOMNOLENCE [None]
  - TRANSAMINASES INCREASED [None]
